FAERS Safety Report 7204825-9 (Version None)
Quarter: 2010Q4

REPORT INFORMATION
  Report Type: 
  Country: None (occurrence: None)
  Receive Date: 20101230
  Receipt Date: 20101221
  Transmission Date: 20110411
  Serious: Yes (Disabling, Other)
  Sender: FDA-Public Use
  Company Number: GB-WATSON-2010-16532

PATIENT
  Age: 36 Year
  Sex: Female

DRUGS (2)
  1. TOPIRAMATE [Suspect]
     Indication: MIGRAINE
     Dosage: 150 MG, DAILY
     Route: 048
     Dates: start: 20100101, end: 20101101
  2. FOLIC ACID [Concomitant]
     Indication: PRODUCT USED FOR UNKNOWN INDICATION
     Dosage: 5 MG, UNK
     Route: 048

REACTIONS (3)
  - ANGLE CLOSURE GLAUCOMA [None]
  - BLINDNESS [None]
  - WITHDRAWAL SYNDROME [None]
